FAERS Safety Report 13142752 (Version 4)
Quarter: 2017Q2

REPORT INFORMATION
  Report Type: Report from Study
  Country: JP (occurrence: JP)
  Receive Date: 20170124
  Receipt Date: 20170530
  Transmission Date: 20170830
  Serious: Yes (Hospitalization)
  Sender: FDA-Public Use
  Company Number: JP-PFIZER INC-2017028174

PATIENT
  Age: 31 Year
  Sex: Female

DRUGS (5)
  1. ULTIBRO [Concomitant]
     Active Substance: GLYCOPYRRONIUM\INDACATEROL
     Indication: LYMPHANGIOLEIOMYOMATOSIS
     Dosage: UNK
     Route: 055
     Dates: start: 20151018
  2. SIROLIMUS. [Suspect]
     Active Substance: SIROLIMUS
     Indication: LYMPHANGIOLEIOMYOMATOSIS
     Dosage: 2 MG, DAILY
     Route: 048
     Dates: start: 20150710, end: 20150717
  3. SPIRIVA [Concomitant]
     Active Substance: TIOTROPIUM BROMIDE MONOHYDRATE
     Indication: LYMPHANGIOLEIOMYOMATOSIS
     Dosage: UNK
     Dates: start: 20151019, end: 20151224
  4. SYMBICORT [Suspect]
     Active Substance: BUDESONIDE\FORMOTEROL FUMARATE DIHYDRATE
     Indication: LYMPHANGIOLEIOMYOMATOSIS
     Dosage: UNK
     Route: 055
     Dates: start: 20151224, end: 20151224
  5. SIROLIMUS. [Suspect]
     Active Substance: SIROLIMUS
     Dosage: 2 MG, DAILY
     Route: 048
     Dates: start: 20150805, end: 20151224

REACTIONS (3)
  - Gastroenteritis [Recovered/Resolved]
  - Eczema [Recovered/Resolved]
  - Dyspnoea [Not Recovered/Not Resolved]

NARRATIVE: CASE EVENT DATE: 20150715
